FAERS Safety Report 10779363 (Version 1)
Quarter: 2015Q1

REPORT INFORMATION
  Report Type: Report from Study
  Country: US (occurrence: US)
  Receive Date: 20150210
  Receipt Date: 20150210
  Transmission Date: 20150721
  Serious: Yes (Other)
  Sender: FDA-Public Use
  Company Number: US-BEH-2015048430

PATIENT
  Sex: Female

DRUGS (1)
  1. HIZENTRA [Suspect]
     Active Substance: HUMAN IMMUNOGLOBULIN G

REACTIONS (11)
  - Needle issue [Unknown]
  - Colitis ulcerative [Unknown]
  - Infection [Unknown]
  - Eye disorder [Unknown]
  - Fatigue [Unknown]
  - Sjogren^s syndrome [Unknown]
  - Lymph gland infection [Unknown]
  - Crohn^s disease [Unknown]
  - Chronic sinusitis [Unknown]
  - Sialoadenitis [Unknown]
  - Gastrointestinal disorder [Unknown]
